APPROVED DRUG PRODUCT: TWIRLA
Active Ingredient: ETHINYL ESTRADIOL; LEVONORGESTREL
Strength: 0.03MG/24HR;0.12MG/24HR
Dosage Form/Route: SYSTEM;TRANSDERMAL
Application: N204017 | Product #001
Applicant: AGILE THERAPEUTICS INC
Approved: Feb 14, 2020 | RLD: Yes | RS: Yes | Type: RX

PATENTS:
Patent 8747888 | Expires: Jul 10, 2028
Patent 8246978 | Expires: Aug 26, 2028
Patent 9050348 | Expires: Jul 10, 2028